FAERS Safety Report 5236921-X (Version None)
Quarter: 2007Q1

REPORT INFORMATION
  Report Type: 
  Country: None (occurrence: None)
  Receive Date: 20070131
  Receipt Date: 20061121
  Transmission Date: 20070707
  Serious: Yes (Hospitalization)
  Sender: FDA-Public Use
  Company Number: 232797

PATIENT
  Age: 68 Year
  Sex: Male
  Weight: 56.3 kg

DRUGS (8)
  1. AVASTIN [Suspect]
     Indication: COLORECTAL CANCER
     Dosage: 325 MG, Q2W, INTRAVENOUS
     Route: 042
     Dates: start: 20060608, end: 20061026
  2. CAPECITABINE (CAPECITABINE) [Suspect]
     Dosage: 2650 MG, BID, ORAL
     Route: 048
     Dates: start: 20060608, end: 20061026
  3. OXALIPLATIN [Suspect]
     Indication: COLORECTAL CANCER
     Dosage: 145 MG, Q2W, INTRAVENOUS
     Route: 042
     Dates: start: 20060608, end: 20061026
  4. METOPROLOL TARTRATE [Concomitant]
  5. BENDROFLUAZIDE (BENDROFLUMETHIAZIDE) [Concomitant]
  6. ALLOPURINOL [Concomitant]
  7. LOPERAMIDE [Concomitant]
  8. METOCLOPRAMIDE (METOCLOPRAMIDE HYDROCHLORIDE) [Concomitant]

REACTIONS (4)
  - CONFUSIONAL STATE [None]
  - GASTROINTESTINAL PERFORATION [None]
  - MENTAL STATUS CHANGES [None]
  - SOMNOLENCE [None]
